FAERS Safety Report 17211718 (Version 4)
Quarter: 2020Q3

REPORT INFORMATION
  Report Type: Report from Study
  Country: None (occurrence: US)
  Receive Date: 20191230
  Receipt Date: 20200701
  Transmission Date: 20201102
  Serious: Yes (Other)
  Sender: FDA-Public Use
  Company Number: US-ABBVIE-19K-163-3210055-00

PATIENT
  Age: 70 Year
  Sex: Male

DRUGS (5)
  1. VENCLEXTA [Suspect]
     Active Substance: VENETOCLAX
     Route: 048
  2. VENCLEXTA [Suspect]
     Active Substance: VENETOCLAX
     Route: 048
  3. KEFLEX [Concomitant]
     Active Substance: CEPHALEXIN
     Indication: PRODUCT USED FOR UNKNOWN INDICATION
  4. VENCLEXTA [Suspect]
     Active Substance: VENETOCLAX
     Route: 048
  5. VENCLEXTA [Suspect]
     Active Substance: VENETOCLAX
     Indication: ACUTE MYELOID LEUKAEMIA
     Route: 048
     Dates: start: 20191209

REACTIONS (20)
  - Neuropathy peripheral [Not Recovered/Not Resolved]
  - Fatigue [Not Recovered/Not Resolved]
  - Platelet count decreased [Unknown]
  - Asthenia [Unknown]
  - Platelet transfusion [Unknown]
  - Haemoglobin decreased [Unknown]
  - Pain [Unknown]
  - Platelet disorder [Unknown]
  - Decreased activity [Unknown]
  - Oral disorder [Unknown]
  - Rash [Unknown]
  - White blood cell count decreased [Unknown]
  - Headache [Not Recovered/Not Resolved]
  - Rash macular [Unknown]
  - Somnolence [Unknown]
  - Balance disorder [Unknown]
  - Constipation [Not Recovered/Not Resolved]
  - Abscess [Unknown]
  - Affect lability [Unknown]
  - Back pain [Unknown]

NARRATIVE: CASE EVENT DATE: 2019
